FAERS Safety Report 5992964-X (Version None)
Quarter: 2008Q4

REPORT INFORMATION
  Report Type: 
  Country: None (occurrence: None)
  Receive Date: 20081210
  Receipt Date: 20081125
  Transmission Date: 20090506
  Serious: Yes (Other)
  Sender: FDA-Public Use
  Company Number: 08-001892

PATIENT
  Age: 28 Year
  Sex: Female
  Weight: 59.9 kg

DRUGS (1)
  1. NATAFORT (NATAFORT) TABLET, 1UNIT [Suspect]
     Indication: PRENATAL CARE
     Dosage: 1 UNIT, QD, ORAL
     Route: 048
     Dates: start: 20080530, end: 20081010

REACTIONS (3)
  - ABORTION SPONTANEOUS [None]
  - DRUG EXPOSURE DURING PREGNANCY [None]
  - PRODUCT QUALITY ISSUE [None]
